FAERS Safety Report 21491432 (Version 8)
Quarter: 2024Q2

REPORT INFORMATION
  Report Type: Spontaneous
  Country: US (occurrence: US)
  Receive Date: 20221021
  Receipt Date: 20240430
  Transmission Date: 20240716
  Serious: Yes (Other)
  Sender: FDA-Public Use
  Company Number: US-PFIZER INC-PV202200081702

PATIENT
  Age: 71 Year
  Sex: Female
  Weight: 80.1 kg

DRUGS (4)
  1. IBRANCE [Suspect]
     Active Substance: PALBOCICLIB
     Indication: Soft tissue sarcoma
     Dosage: 1 TABLET ONCE DAILY WITH OR WITHOUT FOOD FOR 21 DAYS FOLLOWED BY 7 DAYS OFF, REPEATED EVERY 28 DAYS
     Route: 048
     Dates: start: 202210
  2. IBRANCE [Suspect]
     Active Substance: PALBOCICLIB
     Dosage: UNK
     Dates: start: 20221017, end: 20221019
  3. IBRANCE [Suspect]
     Active Substance: PALBOCICLIB
     Dosage: TAKE 1 TABLET DAILY FOR 21 DAYS EVERY 28 DAYS
     Dates: start: 2023
  4. IBRANCE [Suspect]
     Active Substance: PALBOCICLIB
     Dosage: 75 MG

REACTIONS (4)
  - Myelosuppression [Unknown]
  - Leukopenia [Unknown]
  - Off label use [Unknown]
  - Vision blurred [Unknown]

NARRATIVE: CASE EVENT DATE: 20221001
